FAERS Safety Report 5007256-5 (Version None)
Quarter: 2006Q2

REPORT INFORMATION
  Report Type: 
  Country: None (occurrence: None)
  Receive Date: 20060517
  Receipt Date: 20060501
  Transmission Date: 20061013
  Serious: Yes (Death)
  Sender: FDA-Public Use
  Company Number: US200605000494

PATIENT
  Sex: Male

DRUGS (3)
  1. FORTEO [Suspect]
     Indication: OSTEOPOROSIS
     Dosage: 20 UG
  2. FORTEO PEN (FORTEO PEN) [Concomitant]
  3. ANTIBIOTICS [Concomitant]

REACTIONS (4)
  - DENTAL OPERATION [None]
  - INFECTION [None]
  - LUNG DISORDER [None]
  - PHARMACEUTICAL PRODUCT COMPLAINT [None]
